FAERS Safety Report 4613033-7 (Version None)
Quarter: 2005Q1

REPORT INFORMATION
  Report Type: 
  Country: None (occurrence: None)
  Receive Date: 20050318
  Receipt Date: 20050310
  Transmission Date: 20050727
  Serious: Yes (Hospitalization)
  Sender: FDA-Public Use
  Company Number: NO-MERCK-0503NOR00036

PATIENT
  Age: 55 Year
  Sex: Male

DRUGS (3)
  1. VIOXX [Suspect]
     Indication: ARTHRALGIA
     Route: 048
     Dates: start: 20000501, end: 20000604
  2. VIOXX [Suspect]
     Indication: OSTEOARTHRITIS
     Route: 048
     Dates: start: 20000501, end: 20000604
  3. CANDESARTAN CILEXETIL [Concomitant]
     Indication: HYPERTENSION
     Route: 048
     Dates: start: 19990101

REACTIONS (11)
  - ANGINA UNSTABLE [None]
  - ARTHRITIS [None]
  - BACK DISORDER [None]
  - BLOOD PRESSURE DECREASED [None]
  - CORONARY ARTERY STENOSIS [None]
  - GASTROENTERITIS [None]
  - MYALGIA [None]
  - MYOCARDIAL INFARCTION [None]
  - ORAL PAIN [None]
  - POST PROCEDURAL PAIN [None]
  - SINUS BRADYCARDIA [None]
